FAERS Safety Report 22761424 (Version 11)
Quarter: 2024Q1

REPORT INFORMATION
  Report Type: Spontaneous
  Country: US (occurrence: US)
  Receive Date: 20230728
  Receipt Date: 20240301
  Transmission Date: 20240409
  Serious: Yes (Other)
  Sender: FDA-Public Use
  Company Number: US-PFIZER INC-PV202300048183

PATIENT
  Age: 65 Year
  Sex: Female

DRUGS (1)
  1. BOSULIF [Suspect]
     Active Substance: BOSUTINIB MONOHYDRATE
     Indication: Chronic myeloid leukaemia
     Dosage: 100 MG, DAILY (TAKE WHOLE WITH WATER AND FOOD)/ TAKE 1 TABLET (100 MG) DAILY
     Route: 048

REACTIONS (4)
  - Cerebrovascular accident [Unknown]
  - Mouth swelling [Unknown]
  - Speech disorder [Unknown]
  - Oral pain [Unknown]
